FAERS Safety Report 17314360 (Version 1)
Quarter: 2020Q1

REPORT INFORMATION
  Report Type: Spontaneous
  Country: FR (occurrence: FR)
  Receive Date: 20200124
  Receipt Date: 20200124
  Transmission Date: 20200409
  Serious: Yes (Life-Threatening)
  Sender: FDA-Public Use
  Company Number: FR-TEVA-2020-FR-1171940

PATIENT
  Age: 36 Year
  Sex: Female
  Weight: 76 kg

DRUGS (9)
  1. METOJECT 15 MG/0,30 ML, SOLUTION INJECTABLE EN STYLO PR?REMPLI [Concomitant]
     Active Substance: METHOTREXATE SODIUM
  2. CHLORHYDRATE DE TRAMADOL [Suspect]
     Active Substance: TRAMADOL HYDROCHLORIDE
     Indication: SUICIDE ATTEMPT
     Dosage: UNKNOWN DOSE
     Route: 048
     Dates: start: 20191123, end: 20191123
  3. PARACETAMOL [Concomitant]
     Active Substance: ACETAMINOPHEN
  4. EFFEXOR [Suspect]
     Active Substance: VENLAFAXINE HYDROCHLORIDE
     Indication: SUICIDE ATTEMPT
     Dosage: 40 DOSAGE FORM, SHE WOULD HAVE TAKEN 4 PLATELETS, THE EXACT QUANTITY IS NOT ESTIMATED
     Route: 048
     Dates: start: 20191123, end: 20191123
  5. SERESTA 50 MG, COMPRIM? S?CABLE [Concomitant]
     Active Substance: OXAZEPAM
  6. PENTASA 2 G, GRANUL?S EN SACHET-DOSE [Concomitant]
  7. LUTENYL 3,75 MG, COMPRIM? [Concomitant]
  8. ACIDE FOLIQUE ARROW 5 MG, COMPRIM? [Concomitant]
     Active Substance: FOLIC ACID
  9. TERCIAN 25 MG, COMPRIM? PELLICUL? S?CABLE [Suspect]
     Active Substance: CYAMEMAZINE
     Indication: SUICIDE ATTEMPT
     Dosage: 100 DOSAGE FORM, SHE WOULD HAVE TAKEN 4 PLATELETS, THE EXACT QUANTITY IS NOT ESTIMATED
     Route: 048
     Dates: start: 20191123, end: 20191123

REACTIONS (2)
  - Coma [Recovered/Resolved]
  - Intentional overdose [Recovered/Resolved]

NARRATIVE: CASE EVENT DATE: 20191123
